FAERS Safety Report 5094239-2 (Version None)
Quarter: 2006Q3

REPORT INFORMATION
  Report Type: 
  Country: None (occurrence: None)
  Receive Date: 20060831
  Receipt Date: 20060607
  Transmission Date: 20061208
  Serious: Yes (Death, Hospitalization)
  Sender: FDA-Public Use
  Company Number: S2006US06093

PATIENT
  Age: 86 Year
  Sex: Female

DRUGS (8)
  1. LANOXIN [Suspect]
     Indication: CARDIAC FAILURE CONGESTIVE
     Route: 065
  2. BLOOD TRANSFUSION [Suspect]
  3. CELEBREX [Concomitant]
  4. BETAPACE [Concomitant]
  5. ELAVIL [Concomitant]
  6. LORCET-HD [Concomitant]
  7. FUROSEMIDE [Concomitant]
  8. HYDROCODONE BITARTRATE [Concomitant]
     Indication: PAIN

REACTIONS (4)
  - BLOOD IRON INCREASED [None]
  - DEATH [None]
  - HEPATIC FUNCTION ABNORMAL [None]
  - RENAL IMPAIRMENT [None]
